FAERS Safety Report 12933652 (Version 2)
Quarter: 2016Q4

REPORT INFORMATION
  Report Type: Spontaneous
  Country: US (occurrence: US)
  Receive Date: 20161111
  Receipt Date: 20161209
  Transmission Date: 20170207
  Serious: Yes (Other)
  Sender: FDA-Public Use
  Company Number: US-BAYER-2016-216479

PATIENT
  Age: 17 Year
  Sex: Female

DRUGS (1)
  1. SKYLA [Suspect]
     Active Substance: LEVONORGESTREL
     Indication: CONTRACEPTION
     Dosage: 14 MCG/24HR, CONT
     Route: 015
     Dates: start: 20151005, end: 20161103

REACTIONS (5)
  - Hypomenorrhoea [None]
  - Genital haemorrhage [Not Recovered/Not Resolved]
  - Menorrhagia [None]
  - Device expulsion [None]
  - Metrorrhagia [None]

NARRATIVE: CASE EVENT DATE: 2016
